FAERS Safety Report 21141465 (Version 1)
Quarter: 2022Q3

REPORT INFORMATION
  Report Type: Spontaneous
  Country: CA (occurrence: CA)
  Receive Date: 20220728
  Receipt Date: 20220728
  Transmission Date: 20221027
  Serious: Yes (Hospitalization)
  Sender: FDA-Public Use
  Company Number: CA-BAYER-2022A104799

PATIENT
  Age: 58 Year
  Sex: Female
  Weight: 61 kg

DRUGS (7)
  1. ALEVE [Suspect]
     Active Substance: NAPROXEN SODIUM
     Indication: Pain in extremity
     Dosage: 220 MG 4 EVERY 1 DAYS
     Route: 048
  2. LACTULOSE [Concomitant]
     Active Substance: LACTULOSE
  3. FUROSEMIDE [Concomitant]
     Active Substance: FUROSEMIDE
  4. PANTOPRAZOLE SODIUM [Concomitant]
     Active Substance: PANTOPRAZOLE SODIUM
  5. RIFAXIMIN [Concomitant]
     Active Substance: RIFAXIMIN
  6. SPIRONOLACTONE [Concomitant]
     Active Substance: SPIRONOLACTONE
  7. ATIVAN [Concomitant]
     Active Substance: LORAZEPAM

REACTIONS (4)
  - Upper gastrointestinal haemorrhage [Recovered/Resolved]
  - Haematemesis [Recovered/Resolved]
  - Gastritis [Recovered/Resolved]
  - Hypotension [Recovered/Resolved]
